FAERS Safety Report 14137214 (Version 1)
Quarter: 2017Q4

REPORT INFORMATION
  Report Type: Spontaneous
  Country: US (occurrence: US)
  Receive Date: 20171027
  Receipt Date: 20171027
  Transmission Date: 20180321
  Serious: Yes (Other)
  Sender: FDA-Public Use
  Company Number: US-GLAXOSMITHKLINE-US2017163705

PATIENT
  Age: 44 Year
  Sex: Female

DRUGS (3)
  1. PLAQUENIL [Concomitant]
     Active Substance: HYDROXYCHLOROQUINE SULFATE
  2. PREDNISONE. [Concomitant]
     Active Substance: PREDNISONE
  3. BENLYSTA [Suspect]
     Active Substance: BELIMUMAB
     Indication: SYSTEMIC LUPUS ERYTHEMATOSUS
     Dosage: UNK UNK, CYC
     Dates: end: 20170504

REACTIONS (8)
  - Respiratory tract infection [Unknown]
  - Cough [Unknown]
  - Sinus disorder [Recovering/Resolving]
  - Pneumonia [Recovering/Resolving]
  - Pulmonary congestion [Recovering/Resolving]
  - Pleurisy [Recovering/Resolving]
  - Pleuritic pain [Recovering/Resolving]
  - Condition aggravated [Unknown]

NARRATIVE: CASE EVENT DATE: 201612
